FAERS Safety Report 8578829-8 (Version None)
Quarter: 2012Q2

REPORT INFORMATION
  Report Type: 
  Country: None (occurrence: None)
  Receive Date: 20120423
  Receipt Date: 20081121
  Transmission Date: 20120825
  Serious: Yes (Other)
  Sender: FDA-Public Use
  Company Number: PHHY2008US37001

PATIENT
  Age: 3 Year
  Sex: Female

DRUGS (1)
  1. EXJADE [Suspect]
     Dosage: 375 MG, QD, ORAL
     Route: 048
     Dates: start: 20081103

REACTIONS (3)
  - RASH ERYTHEMATOUS [None]
  - RASH GENERALISED [None]
  - PYREXIA [None]
